FAERS Safety Report 4711823-3 (Version None)
Quarter: 2005Q3

REPORT INFORMATION
  Report Type: 
  Country: None (occurrence: None)
  Receive Date: 20050708
  Receipt Date: 20050221
  Transmission Date: 20060218
  Serious: Yes (Other)
  Sender: FDA-Public Use
  Company Number: 2005034565

PATIENT
  Age: 64 Year
  Sex: Male
  Weight: 88.4514 kg

DRUGS (4)
  1. NICOTROL [Suspect]
     Indication: SMOKING CESSATION THERAPY
     Dosage: 1 CARTRIDGE 1-3 TIMES PER DAY, IHALATION
     Route: 055
     Dates: start: 20040501
  2. AMLODIPINE BESYLATE [Concomitant]
  3. ROSIGLITAZONE MALEATE [Concomitant]
  4. RABEPRAZOLE SODIUM [Concomitant]

REACTIONS (1)
  - DEPENDENCE [None]
